FAERS Safety Report 5946198-5 (Version None)
Quarter: 2008Q4

REPORT INFORMATION
  Report Type: 
  Country: None (occurrence: None)
  Receive Date: 20081110
  Receipt Date: 20081106
  Transmission Date: 20090506
  Serious: Yes (Life-Threatening, Hospitalization)
  Sender: FDA-Public Use
  Company Number: CH-JNJFOC-20081003992

PATIENT
  Age: 36 Year
  Sex: Male

DRUGS (2)
  1. RISPERDAL [Suspect]
     Indication: MENTAL IMPAIRMENT
     Route: 030
  2. SERDOLECT [Suspect]
     Indication: DRUG USE FOR UNKNOWN INDICATION
     Route: 048

REACTIONS (2)
  - ELECTROCARDIOGRAM QT PROLONGED [None]
  - FALL [None]
